FAERS Safety Report 7485422-7 (Version None)
Quarter: 2011Q2

REPORT INFORMATION
  Report Type: 
  Country: None (occurrence: None)
  Receive Date: 20110517
  Receipt Date: 20110510
  Transmission Date: 20111010
  Serious: Yes (Hospitalization)
  Sender: FDA-Public Use
  Company Number: US-GILEAD-2011-0036212

PATIENT
  Sex: Female

DRUGS (9)
  1. LETAIRIS [Suspect]
     Indication: ISCHAEMIC CARDIOMYOPATHY
  2. METOPROLOL SUCCINATE [Concomitant]
  3. TORSEMIDE [Concomitant]
  4. WARFARIN SODIUM [Concomitant]
  5. LOSARTAN [Concomitant]
  6. LETAIRIS [Suspect]
     Indication: PULMONARY HYPERTENSION
     Route: 048
     Dates: start: 20101020
  7. LETAIRIS [Suspect]
     Indication: CARDIAC FAILURE ACUTE
  8. LEVOTHYROXINE SODIUM [Concomitant]
  9. METOLAZONE [Concomitant]

REACTIONS (2)
  - HAEMORRHAGE [None]
  - HAEMOGLOBIN DECREASED [None]
